FAERS Safety Report 19116587 (Version 2)
Quarter: 2021Q2

REPORT INFORMATION
  Report Type: Other
  Country: US (occurrence: US)
  Receive Date: 20210409
  Receipt Date: 20210607
  Transmission Date: 20210717
  Serious: Yes (Hospitalization)
  Sender: FDA-Public Use
  Company Number: US-ROCHE-2801832

PATIENT
  Sex: Female

DRUGS (1)
  1. XELODA [Suspect]
     Active Substance: CAPECITABINE
     Indication: COLORECTAL CANCER METASTATIC
     Dosage: TAKE 3 TABLET(S) BY MOUTH EVERY MORNING AND EVERY EVENING 2 WEEK(S) ON, 1 WEEK(S) OFF 21 DAY CYCLE
     Route: 048

REACTIONS (7)
  - Peripheral swelling [Unknown]
  - Blood potassium abnormal [Unknown]
  - Stomatitis [Unknown]
  - Colitis [Unknown]
  - Dehydration [Unknown]
  - Joint swelling [Unknown]
  - Diarrhoea [Unknown]
